FAERS Safety Report 12561729 (Version 2)
Quarter: 2016Q3

REPORT INFORMATION
  Report Type: Spontaneous
  Country: US (occurrence: US)
  Receive Date: 20160715
  Receipt Date: 20160725
  Transmission Date: 20161109
  Serious: Yes (Hospitalization, Other)
  Sender: FDA-Public Use
  Company Number: US-MEDA-2016070053

PATIENT
  Sex: Male
  Weight: 88 kg

DRUGS (2)
  1. TORSEMIDE. [Suspect]
     Active Substance: TORSEMIDE
  2. ZAROXOLYN [Suspect]
     Active Substance: METOLAZONE

REACTIONS (5)
  - Metabolic encephalopathy [Unknown]
  - Hypokalaemia [Unknown]
  - Cardiac failure [Unknown]
  - Drug ineffective [Unknown]
  - Ventricular tachycardia [Recovered/Resolved]
